FAERS Safety Report 17668925 (Version 2)
Quarter: 2020Q2

REPORT INFORMATION
  Report Type: Spontaneous
  Country: AR (occurrence: AR)
  Receive Date: 20200415
  Receipt Date: 20200428
  Transmission Date: 20200713
  Serious: Yes (Hospitalization, Other)
  Sender: FDA-Public Use
  Company Number: AR-AMGEN-ARGSP2020061807

PATIENT
  Age: 61 Year
  Sex: Female

DRUGS (1)
  1. ENBREL [Suspect]
     Active Substance: ETANERCEPT
     Indication: PSORIATIC ARTHROPATHY
     Dosage: 50 MG, WEEKLY
     Route: 065
     Dates: start: 20110404

REACTIONS (3)
  - Product prescribing issue [Not Recovered/Not Resolved]
  - Pneumonia [Recovered/Resolved]
  - Pulmonary fibrosis [Recovered/Resolved]

NARRATIVE: CASE EVENT DATE: 2011
